FAERS Safety Report 10403617 (Version 2)
Quarter: 2019Q3

REPORT INFORMATION
  Report Type: Spontaneous
  Country: GB (occurrence: GB)
  Receive Date: 20140822
  Receipt Date: 20190813
  Transmission Date: 20191004
  Serious: Yes (Other)
  Sender: FDA-Public Use
  Company Number: PHHY2014GB101584

PATIENT
  Age: 35 Year
  Sex: Female

DRUGS (8)
  1. ONDANSETRON [Suspect]
     Active Substance: ONDANSETRON
     Indication: PROPHYLAXIS
     Dosage: 4 MG, UNK
     Route: 042
  2. BUPIVACAINE. [Suspect]
     Active Substance: BUPIVACAINE
     Indication: SPINAL ANAESTHESIA
     Dosage: 2.8 ML, UNK
     Route: 065
  3. SYNTOCINON [Suspect]
     Active Substance: OXYTOCIN
     Indication: INDUCED LABOUR
     Dosage: 5 IU, UNK
     Route: 042
  4. CEFUROXIME. [Suspect]
     Active Substance: CEFUROXIME
     Indication: PROPHYLAXIS
     Dosage: 1.5 G, UNK
     Route: 042
  5. PHENYLEPHRINE [Suspect]
     Active Substance: PHENYLEPHRINE HYDROCHLORIDE
     Dosage: UNK 67 IG/MIN
     Route: 042
  6. HARTMANN SOLN [Suspect]
     Active Substance: CALCIUM CHLORIDE\POTASSIUM CHLORIDE\SODIUM CHLORIDE\SODIUM LACTATE
     Indication: PRODUCT USED FOR UNKNOWN INDICATION
     Dosage: UNK (RUNNING VIA A PERIPHERAL CANNULA)
     Route: 042
  7. DIAMORPHINE [Suspect]
     Active Substance: DIAMORPHINE
     Indication: SPINAL ANAESTHESIA
     Dosage: 400 UG, UNK
     Route: 065
  8. PHENYLEPHRINE [Suspect]
     Active Substance: PHENYLEPHRINE HYDROCHLORIDE
     Indication: PROPHYLAXIS
     Dosage: 100 UG/ML, UNK (ATTACHED TO THE INTRAVENOUS LINE VIA A Y-CONNECTOR)
     Route: 042

REACTIONS (4)
  - Ventricular tachycardia [Recovered/Resolved]
  - Normal newborn [Unknown]
  - Heart rate decreased [Unknown]
  - Maternal exposure during pregnancy [Recovered/Resolved]
